FAERS Safety Report 5034371-2 (Version None)
Quarter: 2006Q2

REPORT INFORMATION
  Report Type: 
  Country: None (occurrence: None)
  Receive Date: 20060626
  Receipt Date: 20060614
  Transmission Date: 20061013
  Serious: Yes (Hospitalization)
  Sender: FDA-Public Use
  Company Number: FR-GILEAD-2006-0009735

PATIENT
  Age: 38 Year
  Sex: Male

DRUGS (3)
  1. TRUVADA [Suspect]
     Indication: HIV INFECTION
     Route: 048
     Dates: start: 20060225, end: 20060329
  2. TRUVADA [Suspect]
     Dates: start: 20060405
  3. SUSTIVA [Suspect]
     Route: 048
     Dates: start: 20060225, end: 20060329

REACTIONS (4)
  - CHEST X-RAY ABNORMAL [None]
  - CYTOLYTIC HEPATITIS [None]
  - DRUG RASH WITH EOSINOPHILIA AND SYSTEMIC SYMPTOMS [None]
  - TACHYPNOEA [None]
